FAERS Safety Report 4582336-7 (Version None)
Quarter: 2005Q1

REPORT INFORMATION
  Report Type: 
  Country: None (occurrence: None)
  Receive Date: 20050215
  Receipt Date: 20050202
  Transmission Date: 20050727
  Serious: Yes (Other)
  Sender: FDA-Public Use
  Company Number: US-JNJFOC-20050102156

PATIENT
  Sex: Female
  Weight: 70.31 kg

DRUGS (17)
  1. REMICADE [Suspect]
     Route: 042
  2. REMICADE [Suspect]
     Route: 042
  3. PAXIL [Concomitant]
  4. CELEBREX [Concomitant]
  5. NEURONTIN [Concomitant]
  6. PLAQUENIL [Concomitant]
  7. METHOTREXATE [Concomitant]
  8. VITAMIN C [Concomitant]
  9. CALCIUM GLUCONATE [Concomitant]
  10. ULTRAMEGA VIT [Concomitant]
  11. ULTRAMEGA VIT [Concomitant]
  12. ULTRAMEGA VIT [Concomitant]
  13. ULTRAMEGA VIT [Concomitant]
  14. ULTRAMEGA VIT [Concomitant]
  15. ULTRAMEGA VIT [Concomitant]
  16. ALEVE [Concomitant]
  17. VITAMIN B COMPLEX CAP [Concomitant]

REACTIONS (1)
  - DISSEMINATED TUBERCULOSIS [None]
